FAERS Safety Report 4402933-9 (Version None)
Quarter: 2004Q3

REPORT INFORMATION
  Report Type: 
  Country: None (occurrence: None)
  Receive Date: 20040721
  Receipt Date: 20030627
  Transmission Date: 20050211
  Serious: Yes (Other)
  Sender: FDA-Public Use
  Company Number: US-GLAXOSMITHKLINE-A0414336A

PATIENT
  Age: 40 Year
  Sex: Female
  Weight: 75 kg

DRUGS (8)
  1. IMITREX [Suspect]
     Dosage: 50MG AS REQUIRED
     Route: 048
     Dates: start: 20030602, end: 20030609
  2. BENTYL [Concomitant]
  3. NEXIUM [Concomitant]
  4. ASPIRIN [Concomitant]
  5. AXERT [Concomitant]
  6. REGLAN [Concomitant]
  7. COVERA-HS [Concomitant]
  8. LEXAPRO [Concomitant]

REACTIONS (7)
  - ASTHENIA [None]
  - CEREBROVASCULAR ACCIDENT [None]
  - HYPOAESTHESIA ORAL [None]
  - MUSCLE TIGHTNESS [None]
  - SENSATION OF PRESSURE [None]
  - SENSORY DISTURBANCE [None]
  - VISUAL DISTURBANCE [None]
